FAERS Safety Report 9904603 (Version 1)
Quarter: 2014Q1

REPORT INFORMATION
  Report Type: Spontaneous
  Country: IT (occurrence: IT)
  Receive Date: 20140218
  Receipt Date: 20140218
  Transmission Date: 20141002
  Serious: Yes (Other)
  Sender: FDA-Public Use
  Company Number: IT-ELI_LILLY_AND_COMPANY-IT201402002558

PATIENT
  Age: 71 Year
  Sex: Female

DRUGS (5)
  1. CYMBALTA [Suspect]
     Indication: DEPRESSION
     Dosage: 60 MG, QD
     Route: 048
     Dates: start: 20131114, end: 20131114
  2. FUROSEMIDE [Concomitant]
     Indication: HYPERTENSION
     Dosage: 12.5 MG, UNKNOWN
     Route: 048
  3. FLECAINIDE ACETATE [Concomitant]
     Indication: ARRHYTHMIA
     Dosage: 50 MG, UNKNOWN
     Route: 048
  4. COUMADIN [Concomitant]
     Indication: THROMBOSIS
     Dosage: 1 DF, UNKNOWN
     Route: 048
  5. RABEPRAZOLE SODIUM [Concomitant]
     Indication: GASTROOESOPHAGEAL REFLUX DISEASE
     Dosage: 20 MG, UNKNOWN
     Route: 048

REACTIONS (4)
  - Chest pain [Recovering/Resolving]
  - Abdominal pain upper [Recovering/Resolving]
  - Malaise [Recovering/Resolving]
  - Asthenia [Recovering/Resolving]
